FAERS Safety Report 19270316 (Version 1)
Quarter: 2021Q2

REPORT INFORMATION
  Report Type: Spontaneous
  Country: JP (occurrence: JP)
  Receive Date: 20210518
  Receipt Date: 20210518
  Transmission Date: 20210717
  Serious: Yes (Hospitalization, Other)
  Sender: FDA-Public Use
  Company Number: JP-BAYER-2021-115033

PATIENT
  Age: 73 Year
  Sex: Male
  Weight: 67.5 kg

DRUGS (11)
  1. XOFIGO [Suspect]
     Active Substance: RADIUM RA-223 DICHLORIDE
     Indication: HORMONE-REFRACTORY PROSTATE CANCER
     Dosage: 55KBQ/KG
     Route: 042
     Dates: start: 20201217, end: 20201217
  2. TERAMURO [Concomitant]
     Indication: BLOOD PRESSURE MANAGEMENT
     Dosage: DAILY DOSE 1 DF
     Route: 048
  3. GLIMEPIRIDE. [Concomitant]
     Active Substance: GLIMEPIRIDE
     Indication: DIABETES MELLITUS MANAGEMENT
     Dosage: DAILY DOSE 1 DF
     Route: 048
  4. XOFIGO [Suspect]
     Active Substance: RADIUM RA-223 DICHLORIDE
     Indication: HORMONE-REFRACTORY PROSTATE CANCER
     Dosage: 55KBQ/KG
     Route: 042
     Dates: start: 20201015, end: 20201015
  5. XOFIGO [Suspect]
     Active Substance: RADIUM RA-223 DICHLORIDE
     Indication: METASTASES TO BONE
     Dosage: 55KBQ/KG
     Route: 042
     Dates: start: 20200915, end: 20200915
  6. XOFIGO [Suspect]
     Active Substance: RADIUM RA-223 DICHLORIDE
     Indication: HORMONE-REFRACTORY PROSTATE CANCER
     Dosage: 55KBQ/KG
     Route: 042
     Dates: start: 20210204, end: 20210204
  7. LOXOPROFEN NA [Concomitant]
     Active Substance: LOXOPROFEN SODIUM
     Indication: CANCER PAIN
     Dosage: DAILY DOSE 3 DF
     Route: 048
  8. REBAMIPIDE [Concomitant]
     Active Substance: REBAMIPIDE
     Indication: PROPHYLAXIS AGAINST GASTROINTESTINAL ULCER
     Dosage: DAILY DOSE 3 DF
     Route: 048
  9. GLACTIV [Concomitant]
     Active Substance: SITAGLIPTIN
     Indication: DIABETES MELLITUS MANAGEMENT
     Dosage: DAILY DOSE 1 DF
     Route: 048
  10. LUSEFI [Concomitant]
     Active Substance: LUSEOGLIFLOZIN
     Indication: DIABETES MELLITUS MANAGEMENT
     Dosage: DAILY DOSE 1 DF
     Route: 048
  11. XOFIGO [Suspect]
     Active Substance: RADIUM RA-223 DICHLORIDE
     Indication: HORMONE-REFRACTORY PROSTATE CANCER
     Dosage: 55KBQ/KG
     Route: 042
     Dates: start: 20200730, end: 20200730

REACTIONS (6)
  - Myelosuppression [None]
  - Myelosuppression [None]
  - Prostatic specific antigen increased [None]
  - Myelosuppression [None]
  - Myelosuppression [Unknown]
  - Metastases to bone marrow [None]

NARRATIVE: CASE EVENT DATE: 20210107
